FAERS Safety Report 6430935-X (Version None)
Quarter: 2009Q4

REPORT INFORMATION
  Report Type: 
  Country: None (occurrence: None)
  Receive Date: 20091106
  Receipt Date: 20091104
  Transmission Date: 20100525
  Serious: Yes (Life-Threatening, Other)
  Sender: FDA-Public Use
  Company Number: CH-BAYER-200937229GPV

PATIENT
  Age: 88 Year
  Sex: Female

DRUGS (5)
  1. CIPROXIN [Suspect]
     Indication: SMALL INTESTINAL PERFORATION
     Dosage: TOTAL DAILY DOSE: 1000 MG  UNIT DOSE: 500 MG
     Route: 048
     Dates: start: 20090115, end: 20090130
  2. FLAGYL [Concomitant]
     Indication: SMALL INTESTINAL PERFORATION
     Dosage: TOTAL DAILY DOSE: 1000 MG  UNIT DOSE: 500 MG
     Route: 048
     Dates: start: 20090115
  3. LANSOPRAZOLE [Concomitant]
     Dosage: TOTAL DAILY DOSE: 30 MG  UNIT DOSE: 30 MG
     Route: 048
  4. SIMCORA [Concomitant]
     Indication: HYPERLIPIDAEMIA
     Dosage: TOTAL DAILY DOSE: 20 MG  UNIT DOSE: 20 MG
     Route: 048
  5. BLOPRESS [Concomitant]
     Indication: HYPERTENSION
     Dosage: AS USED: 16 MG  UNIT DOSE: 16 MG
     Route: 048

REACTIONS (3)
  - CARDIOVASCULAR DISORDER [None]
  - ELECTROCARDIOGRAM QT INTERVAL ABNORMAL [None]
  - TORSADE DE POINTES [None]
